FAERS Safety Report 10077986 (Version 1)
Quarter: 2014Q2

REPORT INFORMATION
  Report Type: Spontaneous
  Country: US (occurrence: US)
  Receive Date: 20140415
  Receipt Date: 20140415
  Transmission Date: 20141212
  Serious: No
  Sender: FDA-Public Use
  Company Number: US-009507513-1404USA005238

PATIENT
  Sex: Female

DRUGS (2)
  1. PEGINTRON [Suspect]
     Dosage: REDIPEN 80/0.5, ONCE WEEKLY INJECTION
     Dates: start: 20140325
  2. PEGINTRON [Suspect]
     Dosage: REDIPEN 80/0.5, ONCE WEEKLY INJECTION

REACTIONS (5)
  - Drug dose omission [Unknown]
  - Accidental exposure to product [Unknown]
  - Medication error [Unknown]
  - Product quality issue [Unknown]
  - No adverse event [Unknown]
